FAERS Safety Report 26106162 (Version 1)
Quarter: 2025Q4

REPORT INFORMATION
  Report Type: Spontaneous
  Country: US (occurrence: US)
  Receive Date: 20251201
  Receipt Date: 20251201
  Transmission Date: 20260117
  Serious: Yes (Hospitalization, Other)
  Sender: AMNEAL
  Company Number: US-AMNEAL PHARMACEUTICALS-2025-AMRX-04606

PATIENT
  Sex: Female

DRUGS (3)
  1. LORAZEPAM [Suspect]
     Active Substance: LORAZEPAM
     Indication: Psychotic symptom
     Dosage: UNK DOSE
     Route: 042
  2. LORAZEPAM [Suspect]
     Active Substance: LORAZEPAM
     Dosage: DOWNWARD TITRATION
     Route: 042
  3. ARIPIPRAZOLE [Suspect]
     Active Substance: ARIPIPRAZOLE
     Indication: Psychotic symptom
     Dosage: UNK
     Route: 065

REACTIONS (1)
  - Empyema [Unknown]
